FAERS Safety Report 4679671-0 (Version None)
Quarter: 2005Q2

REPORT INFORMATION
  Report Type: 
  Country: None (occurrence: None)
  Receive Date: 20050602
  Receipt Date: 20050523
  Transmission Date: 20051028
  Serious: Yes (Hospitalization, Other)
  Sender: FDA-Public Use
  Company Number: US-BRISTOL-MYERS SQUIBB COMPANY-12979480

PATIENT
  Age: 69 Year
  Sex: Female

DRUGS (6)
  1. KENALOG [Suspect]
  2. DIOVAN [Concomitant]
     Dosage: DOSING: 160/12.5MG ONE TABLET ONCE A DAY
  3. LIPITOR [Concomitant]
  4. SYNTHROID [Concomitant]
  5. ASPIRIN [Concomitant]
  6. MULTI-VITAMINS [Concomitant]

REACTIONS (2)
  - BLINDNESS [None]
  - INFECTION [None]
